FAERS Safety Report 6574010-2 (Version None)
Quarter: 2010Q1

REPORT INFORMATION
  Report Type: 
  Country: None (occurrence: None)
  Receive Date: 20100208
  Receipt Date: 20100201
  Transmission Date: 20100710
  Serious: Yes (Disabling)
  Sender: FDA-Public Use
  Company Number: DE-JNJFOC-20100200256

PATIENT
  Age: 66 Year
  Sex: Male

DRUGS (8)
  1. TAVANIC [Suspect]
     Indication: BRONCHITIS CHRONIC
     Route: 048
  2. TAVANIC [Suspect]
     Route: 048
  3. PREDNISOLON [Concomitant]
     Route: 065
  4. SIMVASTATIN [Concomitant]
     Route: 065
  5. LOSARTAN POTASSIUM AND HYDROCHLOROTHIAZIDE [Concomitant]
     Route: 065
  6. VERAPAMIL [Concomitant]
     Route: 065
  7. SYMBICORT [Concomitant]
     Route: 065
  8. BEROTEC [Concomitant]
     Route: 065

REACTIONS (4)
  - DISABILITY [None]
  - MUSCULOSKELETAL DISCOMFORT [None]
  - TENDON PAIN [None]
  - TENDONITIS [None]
